FAERS Safety Report 6917856-0 (Version None)
Quarter: 2010Q3

REPORT INFORMATION
  Report Type: 
  Country: None (occurrence: None)
  Receive Date: 20100810
  Receipt Date: 20090616
  Transmission Date: 20110219
  Serious: No
  Sender: FDA-Public Use
  Company Number: US-PFIZER INC-2009203665

PATIENT
  Age: 66 Year
  Sex: Female

DRUGS (1)
  1. TOVIAZ [Suspect]
     Indication: HYPERTONIC BLADDER
     Dosage: 4 MG, 1X/DAY
     Dates: start: 20090415, end: 20090420

REACTIONS (1)
  - COUGH [None]
